FAERS Safety Report 9440539 (Version 2)
Quarter: 2013Q3

REPORT INFORMATION
  Report Type: Spontaneous
  Country: FR (occurrence: FR)
  Receive Date: 20130805
  Receipt Date: 20130909
  Transmission Date: 20140515
  Serious: Yes (Hospitalization, Other)
  Sender: FDA-Public Use
  Company Number: FR-ELI_LILLY_AND_COMPANY-FR201307008321

PATIENT
  Age: 50 Year
  Sex: Male

DRUGS (8)
  1. KEPPRA [Concomitant]
     Dosage: 500 MG, UNK
  2. SPECIAFOLDINE [Concomitant]
     Dosage: 0.4 MG, UNK
  3. VITAMIN B12                        /00056201/ [Concomitant]
     Dosage: 1000 UG, MONTHLY (1/M)
  4. LYRICA [Concomitant]
     Dosage: 75 MG, UNK
  5. INEXIUM [Concomitant]
     Dosage: 20 MG, UNK
  6. ALIMTA [Suspect]
     Indication: LUNG ADENOCARCINOMA
     Dosage: 725 MG, UNK
     Route: 042
     Dates: start: 20130404, end: 20130425
  7. AVASTIN [Suspect]
     Indication: LUNG ADENOCARCINOMA
     Dosage: 337 MG, UNK
     Route: 042
     Dates: start: 20130404, end: 20130425
  8. CARBOPLATIN [Suspect]
     Indication: LUNG ADENOCARCINOMA
     Dosage: 585 MG, UNK
     Route: 042
     Dates: start: 20130404, end: 20130425

REACTIONS (12)
  - Postoperative wound complication [Not Recovered/Not Resolved]
  - Wound secretion [Not Recovered/Not Resolved]
  - Wound dehiscence [Not Recovered/Not Resolved]
  - Convulsion [Unknown]
  - Confusional state [Unknown]
  - Malignant neoplasm progression [Not Recovered/Not Resolved]
  - General physical health deterioration [Not Recovered/Not Resolved]
  - Brain abscess [Unknown]
  - Coma [Not Recovered/Not Resolved]
  - Necrosis [Unknown]
  - Hemiplegia [Not Recovered/Not Resolved]
  - Off label use [Recovered/Resolved]
